FAERS Safety Report 15598005 (Version 1)
Quarter: 2018Q4

REPORT INFORMATION
  Report Type: Spontaneous
  Country: JP (occurrence: JP)
  Receive Date: 20181108
  Receipt Date: 20181108
  Transmission Date: 20190205
  Serious: Yes (Other)
  Sender: FDA-Public Use
  Company Number: JP-MYLANLABS-2018M1083863

PATIENT
  Age: 65 Year
  Sex: Male

DRUGS (7)
  1. LEUPRORELIN [Suspect]
     Active Substance: LEUPROLIDE ACETATE
     Indication: METASTATIC SALIVARY GLAND CANCER
     Route: 058
     Dates: start: 201304
  2. PACLITAXEL. [Concomitant]
     Active Substance: PACLITAXEL
     Indication: METASTATIC SALIVARY GLAND CANCER
     Route: 065
  3. FLUOROURACIL. [Concomitant]
     Active Substance: FLUOROURACIL
     Indication: METASTATIC SALIVARY GLAND CANCER
     Route: 065
  4. BICALUTAMIDE. [Suspect]
     Active Substance: BICALUTAMIDE
     Indication: METASTATIC SALIVARY GLAND CANCER
     Route: 048
     Dates: start: 201304
  5. DOCETAXEL. [Concomitant]
     Active Substance: DOCETAXEL
     Indication: METASTATIC SALIVARY GLAND CANCER
     Route: 065
  6. FLUTAMIDE. [Suspect]
     Active Substance: FLUTAMIDE
     Indication: METASTATIC SALIVARY GLAND CANCER
     Route: 065
  7. CISPLATIN. [Concomitant]
     Active Substance: CISPLATIN
     Indication: METASTATIC SALIVARY GLAND CANCER
     Route: 065

REACTIONS (1)
  - Multiple-drug resistance [Unknown]
